FAERS Safety Report 6807440-1 (Version None)
Quarter: 2010Q2

REPORT INFORMATION
  Report Type: 
  Country: None (occurrence: None)
  Receive Date: 20100629
  Receipt Date: 20080924
  Transmission Date: 20101027
  Serious: No
  Sender: FDA-Public Use
  Company Number: US-PFIZER INC-2008080640

PATIENT
  Sex: Male
  Weight: 95.5 kg

DRUGS (5)
  1. XANAX [Suspect]
     Indication: STRESS
     Route: 048
     Dates: start: 20070101
  2. XANAX [Suspect]
     Indication: ANXIETY
  3. ZOLOFT [Concomitant]
  4. AMBIEN [Concomitant]
  5. WELLBUTRIN [Concomitant]

REACTIONS (2)
  - MALE ORGASMIC DISORDER [None]
  - SEXUAL DYSFUNCTION [None]
